FAERS Safety Report 9046578 (Version 1)
Quarter: 2013Q1

REPORT INFORMATION
  Report Type: Spontaneous
  Country: US (occurrence: None)
  Receive Date: 20130128
  Receipt Date: 20130128
  Transmission Date: 20140127
  Serious: Yes (Hospitalization)
  Sender: FDA-Public Use
  Company Number: None

PATIENT
  Age: 51 Year
  Sex: Female

DRUGS (2)
  1. PEGASYS [Suspect]
     Route: 048
     Dates: start: 20121010, end: 20121010
  2. RIBAVIRIN [Suspect]
     Route: 048
     Dates: start: 20121010

REACTIONS (2)
  - Rash [None]
  - Haemoglobin decreased [None]
